FAERS Safety Report 5254328-6 (Version None)
Quarter: 2007Q1

REPORT INFORMATION
  Report Type: 
  Country: None (occurrence: None)
  Receive Date: 20070302
  Receipt Date: 20070221
  Transmission Date: 20070707
  Serious: Yes (Death)
  Sender: FDA-Public Use
  Company Number: US-NOVOPROD-258905

PATIENT
  Sex: Male
  Weight: 84.354 kg

DRUGS (2)
  1. INSULIN DETEMIR FLEXPEN [Suspect]
     Indication: INSULIN-REQUIRING TYPE II DIABETES MELLITUS
     Dosage: 30 U, QD
     Route: 058
     Dates: start: 20060426
  2. INSULIN ASPART [Concomitant]
     Dosage: 22 U, QD
     Route: 058
     Dates: start: 20060426

REACTIONS (1)
  - DIABETIC KETOACIDOSIS [None]
